FAERS Safety Report 4950876-4 (Version None)
Quarter: 2006Q1

REPORT INFORMATION
  Report Type: 
  Country: None (occurrence: None)
  Receive Date: 20060315
  Receipt Date: 20060227
  Transmission Date: 20060701
  Serious: Yes (Other)
  Sender: FDA-Public Use
  Company Number: S06-UKI-01014-01

PATIENT
  Age: 19 Year
  Sex: Male

DRUGS (1)
  1. CIPRALEX (ESCITALOPRAM) [Suspect]
     Indication: DEPRESSION
     Dosage: 20 MG DAILY PO
     Route: 048
     Dates: start: 20060201, end: 20060201

REACTIONS (9)
  - ABDOMINAL PAIN UPPER [None]
  - BALANCE DISORDER [None]
  - CHEST DISCOMFORT [None]
  - DIARRHOEA [None]
  - DIZZINESS [None]
  - JAW DISORDER [None]
  - MALAISE [None]
  - TREMOR [None]
  - VISUAL DISTURBANCE [None]
